FAERS Safety Report 5477554-X (Version None)
Quarter: 2007Q4

REPORT INFORMATION
  Report Type: 
  Country: None (occurrence: None)
  Receive Date: 20071002
  Receipt Date: 20070920
  Transmission Date: 20080405
  Serious: Yes (Other)
  Sender: FDA-Public Use
  Company Number: B0489089A

PATIENT
  Sex: Female

DRUGS (2)
  1. AMOXICILLIN + CLAVULANATE POTASSIUM [Suspect]
     Indication: PYREXIA
     Dosage: TRANSPLACENTARY
     Route: 064
  2. INTRAUTERINE DEVICE [Suspect]

REACTIONS (6)
  - CONTRACEPTIVE DEVICE COMPLICATION [None]
  - DRUG EXPOSURE DURING PREGNANCY [None]
  - FOETAL HEART RATE ABNORMAL [None]
  - LIMB REDUCTION DEFECT [None]
  - PREGNANCY WITH CONTRACEPTIVE DEVICE [None]
  - TRACHEO-OESOPHAGEAL FISTULA [None]
